FAERS Safety Report 10467904 (Version 2)
Quarter: 2014Q3

REPORT INFORMATION
  Report Type: Spontaneous
  Country: BR (occurrence: BR)
  Receive Date: 20140922
  Receipt Date: 20140922
  Transmission Date: 20150326
  Serious: Yes (Other)
  Sender: FDA-Public Use
  Company Number: BR-PFIZER INC-2014254685

PATIENT
  Age: 67 Year
  Sex: Female
  Weight: 73 kg

DRUGS (8)
  1. FRONTAL [Suspect]
     Active Substance: ALPRAZOLAM
     Indication: SLEEP DISORDER
     Dosage: 1 MG, UNK
     Route: 048
     Dates: start: 2008
  2. PURAN [Concomitant]
     Active Substance: LEVOTHYROXINE SODIUM
     Indication: THYROID DISORDER
     Dosage: 1 DF, DAILY
  3. FRONTAL [Suspect]
     Active Substance: ALPRAZOLAM
     Dosage: 2 MG (STRENGTH 2 MG), 1X/DAY
     Route: 048
  4. JANUMET [Concomitant]
     Active Substance: METFORMIN HYDROCHLORIDE\SITAGLIPTIN PHOSPHATE
     Indication: DIABETES MELLITUS
     Dosage: METFORMIN HYDROCHLORIDE 850 MG/ SITAGLIPTIN PHOSPHATE MONOHYDRATE 50 MG, 1X/DAY, CONTINUOUS USE
  5. RIVOTRIL [Concomitant]
     Active Substance: CLONAZEPAM
     Indication: SLEEP DISORDER
  6. TENORETIC [Concomitant]
     Active Substance: ATENOLOL\CHLORTHALIDONE
     Indication: HYPERTENSION
     Dosage: ATENOLOL 50 MG/ CHLORTALIDONE 12.5 MG, ALTERNATE DAY
  7. FRONTAL [Suspect]
     Active Substance: ALPRAZOLAM
     Dosage: 1 MG (ONE TABLET), DAILY
     Route: 048
  8. RIVOTRIL [Concomitant]
     Active Substance: CLONAZEPAM
     Indication: SEDATIVE THERAPY
     Dosage: 2 MG, 1X/DAY, CONTINUOUS USE

REACTIONS (3)
  - Gastric ulcer [Unknown]
  - Abdominal pain upper [Unknown]
  - Drug ineffective [Unknown]
